FAERS Safety Report 9689152 (Version 8)
Quarter: 2014Q2

REPORT INFORMATION
  Report Type: Spontaneous
  Country: US (occurrence: US)
  Receive Date: 20131114
  Receipt Date: 20140429
  Transmission Date: 20141212
  Serious: No
  Sender: FDA-Public Use
  Company Number: US-VERTEX PHARMACEUTICALS INC-2013-010950

PATIENT
  Age: 46 Year
  Sex: Female
  Weight: 69.39 kg

DRUGS (5)
  1. INCIVEK [Suspect]
     Indication: HEPATITIS C
     Dosage: 750 MG, BID
     Route: 048
     Dates: start: 20131022, end: 20140114
  2. PEGASYS [Suspect]
     Indication: HEPATITIS C
     Dosage: 180 ?G, QW
     Route: 058
     Dates: start: 20131022
  3. RIBAVIRIN [Suspect]
     Indication: HEPATITIS C
     Dosage: 3 PILLS AM 2 PILLS PM, QD
     Route: 048
     Dates: start: 20131022
  4. RIBAVIRIN [Suspect]
     Dosage: 2 PILLS IN AM AND 1 PILL PM, QD
     Route: 048
     Dates: start: 20131205
  5. CALCIUM [Concomitant]
     Indication: NUTRITIONAL SUPPLEMENTATION

REACTIONS (13)
  - Alopecia [Not Recovered/Not Resolved]
  - Gingival blister [Not Recovered/Not Resolved]
  - Mouth ulceration [Not Recovered/Not Resolved]
  - White blood cell count decreased [Not Recovered/Not Resolved]
  - Swelling face [Recovered/Resolved]
  - Rash [Recovered/Resolved]
  - Pruritus [Not Recovered/Not Resolved]
  - Dry skin [Recovering/Resolving]
  - Anal pruritus [Recovering/Resolving]
  - Anorectal discomfort [Recovering/Resolving]
  - Nausea [Not Recovered/Not Resolved]
  - Anaemia [Recovered/Resolved]
  - Platelet count decreased [Not Recovered/Not Resolved]
